FAERS Safety Report 25857115 (Version 1)
Quarter: 2025Q3

REPORT INFORMATION
  Report Type: Spontaneous
  Country: GB (occurrence: GB)
  Receive Date: 20250929
  Receipt Date: 20250929
  Transmission Date: 20251021
  Serious: Yes (Disabling)
  Sender: TEVA
  Company Number: GB-862174955-ML2025-04811

PATIENT

DRUGS (1)
  1. LOSARTAN [Suspect]
     Active Substance: LOSARTAN
     Indication: Hypertension
     Route: 065

REACTIONS (6)
  - Mood swings [Unknown]
  - Skin wrinkling [Unknown]
  - Dehydration [Unknown]
  - Skin exfoliation [Recovered/Resolved]
  - Muscle spasms [Unknown]
  - Onychoclasis [Unknown]
